FAERS Safety Report 8950875 (Version 1)
Quarter: 2012Q4

REPORT INFORMATION
  Report Type: Spontaneous
  Country: US (occurrence: None)
  Receive Date: 20121121
  Receipt Date: 20121121
  Transmission Date: 20130627
  Serious: Yes (Death, Hospitalization)
  Sender: FDA-Public Use
  Company Number: 2012033970

PATIENT
  Age: 49 Year
  Sex: Male

DRUGS (2)
  1. IMMUNOGLOBULIN [Suspect]
     Route: 042
  2. CORTICOSTEROID [Suspect]

REACTIONS (2)
  - Glioblastoma multiforme [None]
  - No therapeutic response [None]
